FAERS Safety Report 6194464-3 (Version None)
Quarter: 2009Q2

REPORT INFORMATION
  Report Type: 
  Country: None (occurrence: None)
  Receive Date: 20090519
  Receipt Date: 20090508
  Transmission Date: 20091009
  Serious: Yes (Other)
  Sender: FDA-Public Use
  Company Number: PHHY2009BR07653

PATIENT
  Age: 19 Year
  Sex: Male
  Weight: 65 kg

DRUGS (5)
  1. RITALIN [Suspect]
     Indication: DEPRESSION
     Dosage: 10 MG, BID
  2. RITALIN [Suspect]
     Indication: AGITATION
     Dosage: 10 MG, QD
     Route: 048
  3. RITALIN [Suspect]
     Indication: NERVOUSNESS
  4. TRILEPTAL [Suspect]
     Dosage: 300 MG (BEFORE SLEEPING)
     Route: 048
  5. CITALOPRAM HYDROBROMIDE [Concomitant]
     Dosage: 20 MG, DAILY

REACTIONS (9)
  - AGITATION [None]
  - CONFUSIONAL STATE [None]
  - DEPRESSED MOOD [None]
  - DEPRESSION [None]
  - LIBIDO INCREASED [None]
  - NERVOUSNESS [None]
  - OEDEMA PERIPHERAL [None]
  - SWELLING FACE [None]
  - WEIGHT INCREASED [None]
